FAERS Safety Report 22020498 (Version 3)
Quarter: 2023Q1

REPORT INFORMATION
  Report Type: Spontaneous
  Country: US (occurrence: None)
  Receive Date: 20230222
  Receipt Date: 20230315
  Transmission Date: 20230418
  Serious: Yes (Hospitalization, Other)
  Sender: FDA-Public Use
  Company Number: US-ROCHE-3290040

PATIENT
  Age: 30 Year
  Sex: Female

DRUGS (4)
  1. PULMOZYME [Suspect]
     Active Substance: DORNASE ALFA
     Indication: Cystic fibrosis
     Route: 055
     Dates: start: 2011
  2. OXYGEN [Concomitant]
     Active Substance: OXYGEN
     Indication: Cystic fibrosis
     Dosage: WHEN SLEEPING OR EXERCISING, 3-4 TIMES DAILY
     Route: 055
  3. BREATHING TREATMENT (UNK INGREDIENTS) [Concomitant]
     Indication: Cystic fibrosis
     Dosage: 3-4 TIMES DAILY
     Route: 055
  4. TRIKAFTA [Concomitant]
     Active Substance: ELEXACAFTOR\IVACAFTOR\TEZACAFTOR
     Indication: Cystic fibrosis
     Route: 065

REACTIONS (4)
  - Pneumonia [Recovered/Resolved]
  - Pneumothorax [Unknown]
  - Infection [Recovered/Resolved]
  - Dyspnoea [Unknown]

NARRATIVE: CASE EVENT DATE: 20130101
